FAERS Safety Report 9020664 (Version 1)
Quarter: 2013Q1

REPORT INFORMATION
  Report Type: Spontaneous
  Country: US (occurrence: US)
  Receive Date: 20130119
  Receipt Date: 20130119
  Transmission Date: 20140127
  Serious: No
  Sender: FDA-Public Use
  Company Number: US-ALLERGAN-1206511US

PATIENT
  Sex: Female

DRUGS (8)
  1. BOTOX COSMETIC [Suspect]
     Indication: SKIN WRINKLING
     Dosage: 47 UNITS, SINGLE
     Route: 030
     Dates: start: 20120504, end: 20120504
  2. BOTOX COSMETIC [Suspect]
     Indication: SKIN WRINKLING
  3. BOTOX COSMETIC [Suspect]
     Indication: SKIN WRINKLING
  4. BOTOX COSMETIC [Suspect]
     Indication: SKIN WRINKLING
  5. BOTOX COSMETIC [Suspect]
     Indication: SKIN WRINKLING
  6. BENZOCAINE\LIDOCAINE HYDROCHLORIDE\TETRACAINE [Suspect]
     Indication: LOCAL ANAESTHESIA
     Dosage: UNK
     Dates: start: 20120504, end: 20120504
  7. PREMARIN [Concomitant]
     Indication: HORMONE REPLACEMENT THERAPY
     Dosage: UNK
  8. PROVERA [Concomitant]
     Indication: HORMONE REPLACEMENT THERAPY
     Dosage: UNK

REACTIONS (6)
  - Wrong technique in drug usage process [Unknown]
  - Face oedema [Recovering/Resolving]
  - Pruritus [Recovering/Resolving]
  - Urticaria [Unknown]
  - Erythema [Recovering/Resolving]
  - Hypersensitivity [Unknown]
